FAERS Safety Report 7550428-6 (Version None)
Quarter: 2011Q2

REPORT INFORMATION
  Report Type: 
  Country: None (occurrence: None)
  Receive Date: 20110615
  Receipt Date: 20101004
  Transmission Date: 20111010
  Serious: No
  Sender: FDA-Public Use
  Company Number: US-BAUSCH-2010BL005602

PATIENT
  Age: 59 Year
  Sex: Female

DRUGS (2)
  1. BRIMONIDINE TARTRATE [Suspect]
     Indication: PIGMENTARY GLAUCOMA
     Route: 047
     Dates: start: 20101002, end: 20101002
  2. XALATAN /SWE/ [Concomitant]
     Indication: PIGMENTARY GLAUCOMA
     Route: 047
     Dates: start: 20040101

REACTIONS (1)
  - VITREOUS FLOATERS [None]
